FAERS Safety Report 5368136-9 (Version None)
Quarter: 2007Q2

REPORT INFORMATION
  Report Type: 
  Country: None (occurrence: None)
  Receive Date: 20070620
  Receipt Date: 20070604
  Transmission Date: 20071010
  Serious: Yes (Other)
  Sender: FDA-Public Use
  Company Number: 2007SP010077

PATIENT
  Age: 62 Year
  Sex: Female
  Weight: 52.1637 kg

DRUGS (4)
  1. CLARITIN [Suspect]
     Indication: LACRIMATION INCREASED
     Dosage: 1 DF; QD; PO
     Route: 048
     Dates: start: 20070401
  2. CLARITIN [Suspect]
     Indication: SNEEZING
     Dosage: 1 DF; QD; PO
     Route: 048
     Dates: start: 20070401
  3. ALLERGA /01314201/ [Concomitant]
  4. CHLOR-TRIMETON [Concomitant]

REACTIONS (3)
  - EYE SWELLING [None]
  - HEADACHE [None]
  - LIP SWELLING [None]
